FAERS Safety Report 5921605-2 (Version None)
Quarter: 2008Q3

REPORT INFORMATION
  Report Type: 
  Country: None (occurrence: None)
  Receive Date: 20080909
  Receipt Date: 20080213
  Transmission Date: 20090109
  Serious: Yes (Other)
  Sender: FDA-Public Use
  Company Number: 163-20785-07061659 (1)

PATIENT
  Age: 60 Year
  Sex: Female
  Weight: 56.2 kg

DRUGS (3)
  1. THALOMID [Suspect]
     Indication: MULTIPLE MYELOMA
     Dosage: 150 MG, 1 IN 1 D, ORAL
     Route: 048
     Dates: start: 20070301, end: 20070611
  2. ASPIRIN [Concomitant]
  3. ZOMETA [Concomitant]

REACTIONS (4)
  - ABDOMINAL PAIN UPPER [None]
  - COMPRESSION FRACTURE [None]
  - HEADACHE [None]
  - NEUROPATHY PERIPHERAL [None]
